FAERS Safety Report 7957214-3 (Version None)
Quarter: 2011Q4

REPORT INFORMATION
  Report Type: 
  Country: None (occurrence: None)
  Receive Date: 20111205
  Receipt Date: 20111128
  Transmission Date: 20120403
  Serious: Yes (Hospitalization)
  Sender: FDA-Public Use
  Company Number: PL-UCBSA-8053917

PATIENT
  Age: 47 Year
  Sex: Male
  Weight: 76 kg

DRUGS (9)
  1. MAGNEB6 [Concomitant]
     Indication: LIVER DISORDER
     Dosage: 470 MG+ 6MG
     Route: 048
     Dates: start: 20050930
  2. CERTOLIZUMAB PEGOL [Suspect]
     Dosage: NR OF DOSES :3
     Route: 058
     Dates: start: 20041004, end: 20041029
  3. ASAMAX [Concomitant]
     Indication: CROHN'S DISEASE
     Route: 048
     Dates: start: 20051001
  4. HEPATIL [Concomitant]
     Indication: LIVER DISORDER
     Route: 048
     Dates: start: 20051201
  5. CERTOLIZUMAB PEGOL [Suspect]
     Dosage: DOSE FREQ.: ONCE MONTHLY - NR OF DOSES :5
     Route: 058
     Dates: start: 20041201, end: 20050331
  6. ERGOCALCIFEROL [Concomitant]
     Indication: HYPOCALCAEMIA
     Route: 048
     Dates: start: 20070412
  7. CERTOLIZUMAB PEGOL [Suspect]
     Indication: CROHN'S DISEASE
     Dosage: DOSE FREQ: ONCE MONTHLY - NR OF DOSES :3
     Route: 058
     Dates: start: 20050414
  8. FERROUS SULFATE TAB [Concomitant]
     Indication: ANAEMIA
     Route: 048
     Dates: start: 20061017
  9. CALCIUM SANDOZ [Concomitant]
     Indication: HYPOCALCAEMIA
     Route: 048
     Dates: start: 20061017

REACTIONS (1)
  - PSORIASIS [None]
